FAERS Safety Report 13519238 (Version 2)
Quarter: 2017Q2

REPORT INFORMATION
  Report Type: Spontaneous
  Country: BR (occurrence: BR)
  Receive Date: 20170505
  Receipt Date: 20170605
  Transmission Date: 20170830
  Serious: Yes (Hospitalization)
  Sender: FDA-Public Use
  Company Number: BR-SA-2017SA080459

PATIENT
  Age: 45 Year
  Sex: Female
  Weight: 58 kg

DRUGS (3)
  1. LANTUS [Suspect]
     Active Substance: INSULIN GLARGINE
     Indication: DIABETES MELLITUS
     Route: 051
     Dates: start: 2007
  2. CLIKSTAR [Suspect]
     Active Substance: CLIKSTAR
     Indication: DIABETES MELLITUS
     Dates: start: 2010
  3. HUMALOG [Concomitant]
     Active Substance: INSULIN LISPRO
     Indication: DIABETES MELLITUS
     Dosage: DOSE/FREQ: AFTER THE MEALS (THREE TIMES) OR AS A CORRECTIVE TREATMENT IN CASE OF HIGH GLYCEMIA LEVE
     Dates: start: 2015

REACTIONS (5)
  - Device use issue [Unknown]
  - Blood sodium decreased [Unknown]
  - Ketoacidosis [Recovering/Resolving]
  - Product use issue [Unknown]
  - Product use issue [Unknown]

NARRATIVE: CASE EVENT DATE: 2007
